FAERS Safety Report 12590941 (Version 2)
Quarter: 2016Q3

REPORT INFORMATION
  Report Type: Spontaneous
  Country: US (occurrence: US)
  Receive Date: 20160726
  Receipt Date: 20160726
  Transmission Date: 20161109
  Serious: No
  Sender: FDA-Public Use
  Company Number: US-UNITED THERAPEUTICS-UNT-2015-015122

PATIENT
  Age: 69 Year
  Sex: Female
  Weight: 62.59 kg

DRUGS (2)
  1. REMODULIN [Suspect]
     Active Substance: TREPROSTINIL
     Dosage: UNK
     Route: 041
  2. REMODULIN [Suspect]
     Active Substance: TREPROSTINIL
     Indication: PULMONARY HYPERTENSION
     Dosage: 0.1 ?G/KG/MIN, CONTINUING
     Route: 042
     Dates: start: 20130806

REACTIONS (5)
  - Device issue [Unknown]
  - Malaise [Unknown]
  - Fluid retention [Unknown]
  - Hunger [Unknown]
  - Therapy cessation [Unknown]

NARRATIVE: CASE EVENT DATE: 201511
